FAERS Safety Report 4290181-5 (Version None)
Quarter: 2004Q1

REPORT INFORMATION
  Report Type: 
  Country: None (occurrence: None)
  Receive Date: 20040126
  Receipt Date: 20031106
  Transmission Date: 20041129
  Serious: No
  Sender: FDA-Public Use
  Company Number: USA030536953

PATIENT
  Age: 64 Year
  Sex: Female
  Weight: 53 kg

DRUGS (6)
  1. FORTEO [Suspect]
     Indication: OSTEOPOROSIS
     Dosage: 20 UG/DAY
     Dates: start: 20030509
  2. CALCIUM [Concomitant]
  3. IMITREX [Concomitant]
  4. VITAMIN D [Concomitant]
  5. KEPPRA [Concomitant]
  6. NASONEX [Concomitant]

REACTIONS (8)
  - HEART RATE INCREASED [None]
  - HOT FLUSH [None]
  - INJECTION SITE ERYTHEMA [None]
  - INJECTION SITE HAEMORRHAGE [None]
  - INJECTION SITE REACTION [None]
  - MIGRAINE [None]
  - MUSCLE CRAMP [None]
  - PRURITUS [None]
